FAERS Safety Report 8855043 (Version 1)
Quarter: 2012Q4

REPORT INFORMATION
  Report Type: 
  Country: BE (occurrence: BE)
  Receive Date: 20121023
  Receipt Date: 20121023
  Transmission Date: 20130627
  Serious: Yes (Death, Hospitalization)
  Sender: FDA-Public Use
  Company Number: BE-MYLANLABS-2012S1021277

PATIENT
  Age: 61 Year
  Sex: Female

DRUGS (8)
  1. NAPROXEN [Suspect]
     Indication: ARTHRITIS
     Dosage: And as needed
     Route: 065
  2. ATORVASTATIN [Suspect]
     Route: 065
  3. METFORMIN [Concomitant]
     Route: 065
  4. HYDROCHLOROTHIAZIDE\LISINOPRIL [Concomitant]
     Dosage: 1 DF = 20/12.5mg
     Route: 065
  5. TRAMADOL [Concomitant]
     Dosage: as needed
     Route: 065
  6. ALLOPURINOL [Concomitant]
     Route: 065
  7. RANITIDINE [Concomitant]
     Route: 065
  8. QUININE [Concomitant]
     Route: 065

REACTIONS (4)
  - Toxic epidermal necrolysis [Fatal]
  - Rhabdomyolysis [Unknown]
  - Cardiac arrest [Unknown]
  - Multi-organ failure [Unknown]
